FAERS Safety Report 7914829-6 (Version None)
Quarter: 2011Q4

REPORT INFORMATION
  Report Type: 
  Country: None (occurrence: None)
  Receive Date: 20111115
  Receipt Date: 20111107
  Transmission Date: 20120403
  Serious: Yes (Life-Threatening, Other)
  Sender: FDA-Public Use
  Company Number: AU-ROXANE LABORATORIES, INC.-2011-RO-01600RO

PATIENT
  Age: 47 Year
  Sex: Female

DRUGS (4)
  1. ZIPRASIDONE HYDROCHLORIDE [Suspect]
  2. VENLAFAXINE [Suspect]
     Dosage: 225 MG
  3. DIAZEPAM [Suspect]
  4. PROPRANOLOL [Suspect]
     Dosage: 120 MG

REACTIONS (3)
  - OVERDOSE [None]
  - SINUS BRADYCARDIA [None]
  - ELECTROCARDIOGRAM QT PROLONGED [None]
